FAERS Safety Report 5725735-X (Version None)
Quarter: 2008Q2

REPORT INFORMATION
  Report Type: 
  Country: None (occurrence: None)
  Receive Date: 20080429
  Receipt Date: 20080415
  Transmission Date: 20081010
  Serious: Yes (Hospitalization, Disabling)
  Sender: FDA-Public Use
  Company Number: 163-21880-08011573

PATIENT
  Age: 79 Year
  Sex: Female

DRUGS (3)
  1. REVLIMID [Suspect]
     Indication: MULTIPLE MYELOMA
     Dosage: 15 MG, DAILY X 28 DAYS, ORAL
     Route: 048
     Dates: start: 20080122, end: 20080129
  2. REVLIMID [Suspect]
     Indication: MULTIPLE MYELOMA
     Dosage: 15 MG, DAILY X 28 DAYS, ORAL
     Route: 048
     Dates: start: 20080402
  3. REVLIMID [Suspect]

REACTIONS (6)
  - BONE SCAN ABNORMAL [None]
  - CHEST PAIN [None]
  - MALAISE [None]
  - NEURALGIA [None]
  - PLATELET COUNT DECREASED [None]
  - PLEURISY [None]
